FAERS Safety Report 26069298 (Version 1)
Quarter: 2025Q4

REPORT INFORMATION
  Report Type: Spontaneous
  Country: US (occurrence: None)
  Receive Date: 20251119
  Receipt Date: 20251119
  Transmission Date: 20260117
  Serious: No
  Sender: FDA-CTU
  Company Number: None

PATIENT
  Age: 31 Year

DRUGS (1)
  1. AMOXICILLIN\CLAVULANATE POTASSIUM [Suspect]
     Active Substance: AMOXICILLIN\CLAVULANATE POTASSIUM
     Dosage: FREQUENCY : TWICE A DAY;?
     Route: 048
     Dates: start: 20251117, end: 20251118

REACTIONS (5)
  - Rash [None]
  - Therapy cessation [None]
  - Pruritus [None]
  - Eye swelling [None]
  - Rash [None]

NARRATIVE: CASE EVENT DATE: 20251118
